FAERS Safety Report 7104056-7 (Version None)
Quarter: 2010Q4

REPORT INFORMATION
  Report Type: 
  Country: None (occurrence: None)
  Receive Date: 20101115
  Receipt Date: 20100519
  Transmission Date: 20110411
  Serious: No
  Sender: FDA-Public Use
  Company Number: US-ALLERGAN-1006549US

PATIENT
  Age: 69 Year
  Sex: Male

DRUGS (5)
  1. BOTOXA? [Suspect]
     Indication: SALIVARY HYPERSECRETION
     Dosage: UNK
     Route: 030
     Dates: start: 20100512, end: 20100512
  2. PRILOSEC [Concomitant]
     Indication: GASTROOESOPHAGEAL REFLUX DISEASE
  3. FLUDROCORTISONE ACETATE [Concomitant]
     Indication: HYPOTENSION
  4. SAW PALMETTO [Concomitant]
  5. MULTI-VITAMINS [Concomitant]

REACTIONS (3)
  - DIPLOPIA [None]
  - SOMNAMBULISM [None]
  - VISION BLURRED [None]
